FAERS Safety Report 12199421 (Version 1)
Quarter: 2016Q1

REPORT INFORMATION
  Report Type: Spontaneous
  Country: US (occurrence: None)
  Receive Date: 20160321
  Receipt Date: 20160321
  Transmission Date: 20160526
  Serious: Yes (Hospitalization)
  Sender: FDA-Public Use
  Company Number: None

PATIENT

DRUGS (2)
  1. LANSOPRAZOLE 30 MG [Suspect]
     Active Substance: LANSOPRAZOLE
  2. PANTOPRAZOLE 20MG [Suspect]
     Active Substance: PANTOPRAZOLE SODIUM

REACTIONS (2)
  - Clostridium difficile infection [None]
  - Cerebrovascular accident [None]

NARRATIVE: CASE EVENT DATE: 20150202
